FAERS Safety Report 5603175-1 (Version None)
Quarter: 2008Q1

REPORT INFORMATION
  Report Type: 
  Country: None (occurrence: None)
  Receive Date: 20080123
  Receipt Date: 20080108
  Transmission Date: 20080703
  Serious: Yes (Other)
  Sender: FDA-Public Use
  Company Number: 2008000877

PATIENT
  Sex: Female

DRUGS (1)
  1. LISTERINE WHITENING QUICK DISSOLVING STRIPS (NO ACTIVE INGREDIENT) [Suspect]
     Indication: DENTAL CARE
     Dosage: 4 STRIPS PER DAY, ORAL
     Route: 048
     Dates: start: 20080105

REACTIONS (4)
  - BURNING SENSATION [None]
  - CHAPPED LIPS [None]
  - PHARMACEUTICAL PRODUCT COMPLAINT [None]
  - THERMAL BURN [None]
